FAERS Safety Report 21583453 (Version 1)
Quarter: 2022Q4

REPORT INFORMATION
  Report Type: Spontaneous
  Country: FR (occurrence: FR)
  Receive Date: 20221111
  Receipt Date: 20221111
  Transmission Date: 20230113
  Serious: Yes (Other)
  Sender: FDA-Public Use
  Company Number: None

PATIENT
  Age: 57 Year
  Sex: Female
  Weight: 76 kg

DRUGS (14)
  1. IRINOTECAN [Suspect]
     Active Substance: IRINOTECAN
     Indication: Rectal adenocarcinoma
     Dosage: 240 MG, 1X
     Route: 042
     Dates: start: 20220921, end: 20220921
  2. IRINOTECAN [Suspect]
     Active Substance: IRINOTECAN
     Dosage: 240 MG, 1X
     Route: 042
     Dates: start: 20221005, end: 20221005
  3. IRINOTECAN [Suspect]
     Active Substance: IRINOTECAN
     Dosage: 240 MG, 1X
     Route: 042
     Dates: start: 20221025, end: 20221025
  4. OXALIPLATIN [Suspect]
     Active Substance: OXALIPLATIN
     Indication: Rectal adenocarcinoma
     Dosage: 150 MG, 1X
     Route: 042
     Dates: start: 20220921, end: 20220921
  5. OXALIPLATIN [Suspect]
     Active Substance: OXALIPLATIN
     Dosage: 150 MG, 1X
     Route: 042
     Dates: start: 20221005, end: 20221005
  6. FLUOROURACIL [Suspect]
     Active Substance: FLUOROURACIL
     Indication: Rectal adenocarcinoma
     Dosage: 2950 MG, 1X
     Route: 042
     Dates: start: 20220921, end: 20220923
  7. FLUOROURACIL [Suspect]
     Active Substance: FLUOROURACIL
     Dosage: 2950 MG, 1X
     Route: 042
     Dates: start: 20221005, end: 20221007
  8. FLUOROURACIL [Suspect]
     Active Substance: FLUOROURACIL
     Dosage: 2950 MG, 1X
     Route: 042
     Dates: start: 20221025, end: 20221027
  9. FILGRASTIM [Suspect]
     Active Substance: FILGRASTIM
     Indication: Rectal adenocarcinoma
     Dosage: 1 DF, QD
     Route: 058
     Dates: start: 20220924, end: 20220927
  10. FILGRASTIM [Suspect]
     Active Substance: FILGRASTIM
     Dosage: 1 DF, QD
     Route: 058
     Dates: start: 20221006, end: 20221008
  11. DOLIPRANE [Concomitant]
     Active Substance: ACETAMINOPHEN
     Indication: Pain
     Dosage: 1 G,  EVERY 6 HOURS IF PAIN
     Route: 048
  12. LEVOLEUCOVORIN CALCIUM [Concomitant]
     Active Substance: LEVOLEUCOVORIN CALCIUM
     Indication: Rectal adenocarcinoma
     Dosage: 350 MG, 1X
     Route: 042
     Dates: start: 20220921, end: 20220921
  13. LEVOLEUCOVORIN CALCIUM [Concomitant]
     Active Substance: LEVOLEUCOVORIN CALCIUM
     Dosage: 350 MG, 1X
     Route: 042
     Dates: start: 20221005, end: 20221005
  14. LEVOLEUCOVORIN CALCIUM [Concomitant]
     Active Substance: LEVOLEUCOVORIN CALCIUM
     Dosage: 350 MG, 1X
     Route: 042
     Dates: start: 20221025, end: 20221025

REACTIONS (1)
  - Hepatic cytolysis [Recovering/Resolving]
